FAERS Safety Report 25085151 (Version 4)
Quarter: 2025Q4

REPORT INFORMATION
  Report Type: Spontaneous
  Country: JP (occurrence: JP)
  Receive Date: 20250317
  Receipt Date: 20251212
  Transmission Date: 20260118
  Serious: Yes (Other)
  Sender: MERCK SHARP & DOHME LLC
  Company Number: JP-MSD-M2024-40208

PATIENT
  Age: 76 Year
  Sex: Male

DRUGS (3)
  1. KEYTRUDA [Suspect]
     Active Substance: PEMBROLIZUMAB
     Indication: Bile duct cancer
     Dosage: 8 COURSES, STOPPED DATE: IN APPROXIMATELY 2025/04/01
     Route: 041
     Dates: start: 20240910, end: 20250401
  2. GEMCITABINE HYDROCHLORIDE [Suspect]
     Active Substance: GEMCITABINE HYDROCHLORIDE
     Indication: Bile duct cancer
     Dosage: DOSE DESCRIPTION : A REDUCED DOSE FROM THE INITIAL DOSE: 80%
     Route: 065
     Dates: start: 20240910, end: 20250401
  3. CISPLATIN [Suspect]
     Active Substance: CISPLATIN
     Indication: Bile duct cancer
     Dosage: DOSE DESCRIPTION : A REDUCED DOSE FROM THE INITIAL DOSE: 80%
     Route: 065
     Dates: start: 20240910, end: 20250401

REACTIONS (4)
  - Cytopenia [Recovered/Resolved]
  - Malignant neoplasm progression [Unknown]
  - Stomatitis [Recovered/Resolved]
  - Tinnitus [Not Recovered/Not Resolved]

NARRATIVE: CASE EVENT DATE: 20240101
